FAERS Safety Report 4444468-3 (Version None)
Quarter: 2004Q3

REPORT INFORMATION
  Report Type: 
  Country: None (occurrence: None)
  Receive Date: 20040902
  Receipt Date: 20040823
  Transmission Date: 20050211
  Serious: Yes (Death)
  Sender: FDA-Public Use
  Company Number: USA-2004-0016517

PATIENT
  Age: 26 Year
  Sex: Female

DRUGS (6)
  1. OXYCODONE HYDROCHLORIDE (SIMILAR TO NDA 20-553) (OXYCODONE HDYROCHLORI [Suspect]
  2. MORPHINE SULFATE [Suspect]
  3. LIDOCAINE [Suspect]
  4. COCAINE (COCAINE) [Suspect]
  5. ALPRAZOLAM [Suspect]
  6. METAMFETAMINE (METAMFETAMINE) [Suspect]

REACTIONS (5)
  - CONTUSION [None]
  - HAEMORRHAGIC OVARIAN CYST [None]
  - MULTIPLE DRUG OVERDOSE ACCIDENTAL [None]
  - PNEUMONIA [None]
  - PULMONARY OEDEMA [None]
